FAERS Safety Report 24027281 (Version 2)
Quarter: 2024Q3

REPORT INFORMATION
  Report Type: Spontaneous
  Country: US (occurrence: US)
  Receive Date: 20240628
  Receipt Date: 20240709
  Transmission Date: 20241017
  Serious: No
  Sender: AMGEN
  Company Number: US-AMGEN-USASP2024126390

PATIENT
  Age: 50 Year
  Sex: Male

DRUGS (8)
  1. OTEZLA [Suspect]
     Active Substance: APREMILAST
     Indication: Psoriasis
     Dosage: 30 MILLIGRAM, BID
     Route: 048
     Dates: start: 20221201, end: 20240617
  2. OTEZLA [Suspect]
     Active Substance: APREMILAST
     Dosage: 30 MILLIGRAM, BID
     Route: 048
     Dates: start: 202406
  3. DOXEPIN [Concomitant]
     Active Substance: DOXEPIN
     Dosage: 25 MILLIGRAM
  4. MELOXICAM [Concomitant]
     Active Substance: MELOXICAM
     Dosage: 15 MILLIGRAM
  5. NAPROXEN [Concomitant]
     Active Substance: NAPROXEN
     Dosage: 500 MILLIGRAM
  6. PAROXETINE [Concomitant]
     Active Substance: PAROXETINE
     Dosage: 40 MILLIGRAM
  7. PREGABALIN [Concomitant]
     Active Substance: PREGABALIN
     Dosage: 50 MILLIGRAM
  8. TIZANIDINE [Concomitant]
     Active Substance: TIZANIDINE
     Dosage: 4 MILLIGRAM

REACTIONS (1)
  - Therapy interrupted [Unknown]

NARRATIVE: CASE EVENT DATE: 20240617
